FAERS Safety Report 15425989 (Version 1)
Quarter: 2018Q3

REPORT INFORMATION
  Report Type: Spontaneous
  Country: IT (occurrence: IT)
  Receive Date: 20180925
  Receipt Date: 20180925
  Transmission Date: 20181010
  Serious: Yes (Life-Threatening)
  Sender: FDA-Public Use
  Company Number: PHHY2018IT107738

PATIENT
  Age: 76 Year
  Sex: Male

DRUGS (1)
  1. CEFTRIAXONE. [Suspect]
     Active Substance: CEFTRIAXONE
     Indication: OBSTRUCTIVE AIRWAYS DISORDER
     Dosage: 2 G, UNK (TOTAL)
     Route: 042
     Dates: start: 20180908, end: 20180908

REACTIONS (1)
  - Cardio-respiratory arrest [Unknown]

NARRATIVE: CASE EVENT DATE: 20180908
